FAERS Safety Report 4869976-2 (Version None)
Quarter: 2005Q4

REPORT INFORMATION
  Report Type: 
  Country: None (occurrence: None)
  Receive Date: 20051223
  Receipt Date: 20051214
  Transmission Date: 20060501
  Serious: Yes (Hospitalization)
  Sender: FDA-Public Use
  Company Number: 2005PV005940

PATIENT
  Sex: Male

DRUGS (2)
  1. BYETTA [Suspect]
     Dates: start: 20050101
  2. HUMALOG [Concomitant]

REACTIONS (2)
  - AMPUTATION [None]
  - HYPOGLYCAEMIA [None]
